FAERS Safety Report 5704783-X (Version None)
Quarter: 2008Q2

REPORT INFORMATION
  Report Type: 
  Country: None (occurrence: None)
  Receive Date: 20080414
  Receipt Date: 20080402
  Transmission Date: 20081010
  Serious: Yes (Hospitalization, Other)
  Sender: FDA-Public Use
  Company Number: FR-PFIZER INC-2008002693

PATIENT
  Sex: Female
  Weight: 83 kg

DRUGS (2)
  1. CHAMPIX [Suspect]
     Indication: SMOKING CESSATION THERAPY
     Route: 048
     Dates: start: 20071001, end: 20071229
  2. ASPEGIC 1000 [Concomitant]
     Route: 048

REACTIONS (2)
  - HAND FRACTURE [None]
  - SMOKER [None]
